FAERS Safety Report 5500604-9 (Version None)
Quarter: 2007Q4

REPORT INFORMATION
  Report Type: 
  Country: None (occurrence: None)
  Receive Date: 20071022
  Receipt Date: 20070913
  Transmission Date: 20080405
  Serious: Yes (Other)
  Sender: FDA-Public Use
  Company Number: SPV1-2007-03850

PATIENT
  Age: 51 Year
  Sex: Female
  Weight: 45.4 kg

DRUGS (2)
  1. VYVANSE [Suspect]
     Indication: ATTENTION DEFICIT/HYPERACTIVITY DISORDER
     Dosage: 50 MG, 1X/DAY;QD, ORAL   70 MG, 1X/DAY;QD, ORAL
     Route: 048
     Dates: start: 20070717, end: 20070801
  2. VYVANSE [Suspect]
     Indication: ATTENTION DEFICIT/HYPERACTIVITY DISORDER
     Dosage: 50 MG, 1X/DAY;QD, ORAL   70 MG, 1X/DAY;QD, ORAL
     Route: 048
     Dates: start: 20070802, end: 20070805

REACTIONS (5)
  - ALOPECIA [None]
  - DRUG INEFFECTIVE [None]
  - OFF LABEL USE [None]
  - PHOTOSENSITIVITY REACTION [None]
  - TYPE III IMMUNE COMPLEX MEDIATED REACTION [None]
